FAERS Safety Report 5262555-7 (Version None)
Quarter: 2007Q1

REPORT INFORMATION
  Report Type: 
  Country: None (occurrence: None)
  Receive Date: 20070312
  Receipt Date: 20070306
  Transmission Date: 20070707
  Serious: Yes (Death)
  Sender: FDA-Public Use
  Company Number: PHBS2007SE03973

PATIENT
  Age: 66 Year
  Sex: Male

DRUGS (5)
  1. STARLIX [Suspect]
     Indication: DIABETES MELLITUS
     Dosage: 60 MG, TID
     Route: 048
     Dates: start: 20010615
  2. ATENOLOL [Concomitant]
     Dosage: 50 MG, UNK
     Dates: start: 20031201
  3. SIMVASTATIN [Concomitant]
     Dates: start: 20011201
  4. PANODIL [Concomitant]
     Dosage: 500 MG, UNK
  5. GLUCOPHAGE [Concomitant]
     Dosage: 500 MG, UNK
     Dates: start: 19981201

REACTIONS (2)
  - CARDIAC ARREST [None]
  - SHOCK [None]
